FAERS Safety Report 13489317 (Version 1)
Quarter: 2017Q2

REPORT INFORMATION
  Report Type: Spontaneous
  Country: US (occurrence: US)
  Receive Date: 20170426
  Receipt Date: 20170426
  Transmission Date: 20170830
  Serious: No
  Sender: FDA-Public Use
  Company Number: US-ALKERMES INC.-ALK-2017-000902

PATIENT
  Age: 31 Year
  Sex: Female

DRUGS (1)
  1. VIVITROL [Suspect]
     Active Substance: NALTREXONE
     Indication: DRUG USE DISORDER
     Dosage: 380 MG, QMO
     Route: 030
     Dates: start: 20170110

REACTIONS (7)
  - Fear [Unknown]
  - Abdominal pain upper [Unknown]
  - Anxiety [Unknown]
  - Headache [Recovering/Resolving]
  - Therapeutic response shortened [Unknown]
  - Nervousness [Unknown]
  - Depression [Recovering/Resolving]
